FAERS Safety Report 9173860 (Version 1)
Quarter: 2013Q1

REPORT INFORMATION
  Report Type: Spontaneous
  Country: US (occurrence: US)
  Receive Date: 20130320
  Receipt Date: 20130320
  Transmission Date: 20140127
  Serious: No
  Sender: FDA-Public Use
  Company Number: US-ASTRAZENECA-2013SE12596

PATIENT
  Age: 42 Year
  Sex: Male
  Weight: 83.9 kg

DRUGS (5)
  1. SEROQUEL XR [Suspect]
     Indication: DEPRESSION
     Route: 048
     Dates: start: 201301
  2. SEROQUEL XR [Suspect]
     Indication: ANXIETY
     Route: 048
     Dates: start: 201301
  3. LEXAPRO [Concomitant]
     Indication: DEPRESSION
  4. ATIVAN [Concomitant]
     Indication: ANXIETY
  5. HYDROCHLOROTHIAZIDE [Concomitant]
     Indication: HYPERTENSION

REACTIONS (5)
  - Influenza [Not Recovered/Not Resolved]
  - Paraesthesia [Not Recovered/Not Resolved]
  - Pulmonary congestion [Not Recovered/Not Resolved]
  - Nasopharyngitis [Not Recovered/Not Resolved]
  - Dizziness [Recovered/Resolved]
